FAERS Safety Report 9454336 (Version 1)
Quarter: 2013Q3

REPORT INFORMATION
  Report Type: Spontaneous
  Country: US (occurrence: None)
  Receive Date: 20130809
  Receipt Date: 20130809
  Transmission Date: 20140515
  Serious: Yes (Life-Threatening, Hospitalization, Disabling, Other)
  Sender: FDA-Public Use
  Company Number: None

PATIENT
  Age: 58 Year
  Sex: Female

DRUGS (3)
  1. ONDANSETRON [Suspect]
     Indication: DRUG HYPERSENSITIVITY
     Dosage: 4 MG 1 DAY 30DAYS 1X MOUTH
     Route: 048
     Dates: start: 20130408
  2. TYLENOL [Concomitant]
  3. BENEDRYL [Concomitant]

REACTIONS (9)
  - Headache [None]
  - Abdominal pain upper [None]
  - Memory impairment [None]
  - Coma [None]
  - Thyrotoxic crisis [None]
  - Cardiac disorder [None]
  - Balance disorder [None]
  - Gait disturbance [None]
  - Dysgraphia [None]
